FAERS Safety Report 7276534-1 (Version None)
Quarter: 2011Q1

REPORT INFORMATION
  Report Type: 
  Country: None (occurrence: None)
  Receive Date: 20110204
  Receipt Date: 20110126
  Transmission Date: 20110831
  Serious: Yes (Other)
  Sender: FDA-Public Use
  Company Number: BR-GENENTECH-297788

PATIENT
  Sex: Female
  Weight: 65 kg

DRUGS (12)
  1. CELLCEPT [Suspect]
     Indication: PRODUCT USED FOR UNKNOWN INDICATION
     Dosage: UNK
     Route: 065
     Dates: start: 20070101
  2. OMEPRAZOLE [Concomitant]
     Indication: PRODUCT USED FOR UNKNOWN INDICATION
     Dosage: 40 MG, UNK
  3. ALENDRONATE SODIUM [Concomitant]
     Indication: PRODUCT USED FOR UNKNOWN INDICATION
     Dosage: 70 MG, UNK
  4. ESTRADIOL [Concomitant]
     Indication: PRODUCT USED FOR UNKNOWN INDICATION
  5. LIPITOR [Concomitant]
     Indication: PRODUCT USED FOR UNKNOWN INDICATION
     Dosage: 20 MG, UNK
  6. AMITRIPTYLINE HCL [Concomitant]
     Indication: PRODUCT USED FOR UNKNOWN INDICATION
  7. DUPHASTON [Concomitant]
     Indication: PRODUCT USED FOR UNKNOWN INDICATION
     Dosage: 10 MG, UNK
  8. MABTHERA [Suspect]
     Indication: SYSTEMIC LUPUS ERYTHEMATOSUS
     Dosage: UNK
     Route: 042
     Dates: start: 20090701, end: 20110120
  9. MABTHERA [Suspect]
     Dosage: UNK
     Route: 042
  10. AZATHIOPRINE [Concomitant]
     Indication: IMMUNOSUPPRESSION
     Dosage: 100 MG, UNK
  11. SIMVASTATIN [Concomitant]
     Indication: PRODUCT USED FOR UNKNOWN INDICATION
     Dosage: 20 MG, UNK
  12. TIBOLONE [Concomitant]
     Indication: MENOPAUSE
     Dosage: 2.5 MG, UNK

REACTIONS (32)
  - DECREASED IMMUNE RESPONSIVENESS [None]
  - HAIR COLOUR CHANGES [None]
  - PYREXIA [None]
  - ASPARTATE AMINOTRANSFERASE INCREASED [None]
  - DECREASED APPETITE [None]
  - MICTURITION FREQUENCY DECREASED [None]
  - CHROMATURIA [None]
  - ALANINE AMINOTRANSFERASE [None]
  - BLOOD PRESSURE INCREASED [None]
  - SERUM FERRITIN INCREASED [None]
  - GAMMA-GLUTAMYLTRANSFERASE INCREASED [None]
  - PROTEINURIA [None]
  - RED BLOOD CELLS URINE POSITIVE [None]
  - DYSGEUSIA [None]
  - WEIGHT DECREASED [None]
  - BLOOD CREATININE ABNORMAL [None]
  - BONE PAIN [None]
  - MALAISE [None]
  - WEIGHT INCREASED [None]
  - CANDIDIASIS [None]
  - FATIGUE [None]
  - FEELING OF DESPAIR [None]
  - DIARRHOEA [None]
  - ASTHENIA [None]
  - IRON BINDING CAPACITY TOTAL INCREASED [None]
  - HEPATITIS [None]
  - APHTHOUS STOMATITIS [None]
  - TINEA PEDIS [None]
  - RETCHING [None]
  - NAUSEA [None]
  - SKIN DISCOLOURATION [None]
  - URINARY CASTS PRESENT [None]
